FAERS Safety Report 19650704 (Version 1)
Quarter: 2021Q3

REPORT INFORMATION
  Report Type: Spontaneous
  Country: US (occurrence: US)
  Receive Date: 20210802
  Receipt Date: 20210802
  Transmission Date: 20211014
  Serious: No
  Sender: FDA-Public Use
  Company Number: None

PATIENT
  Age: 72 Year
  Sex: Female

DRUGS (1)
  1. BENLYSTA [Suspect]
     Active Substance: BELIMUMAB
     Indication: SYSTEMIC LUPUS ERYTHEMATOSUS
     Dosage: ?          OTHER DOSE:200;OTHER FREQUENCY:OTHER;?
     Route: 058

REACTIONS (5)
  - Amnesia [None]
  - Anxiety [None]
  - Depression [None]
  - Weight increased [None]
  - Injection site reaction [None]

NARRATIVE: CASE EVENT DATE: 20210802
